FAERS Safety Report 19062381 (Version 1)
Quarter: 2021Q1

REPORT INFORMATION
  Report Type: Spontaneous
  Country: US (occurrence: US)
  Receive Date: 20210325
  Receipt Date: 20210325
  Transmission Date: 20210420
  Serious: Yes (Other)
  Sender: FDA-Public Use
  Company Number: None

PATIENT
  Age: 42 Year
  Sex: Female
  Weight: 121.4 kg

DRUGS (8)
  1. KANJINTI [Suspect]
     Active Substance: TRASTUZUMAB-ANNS
     Indication: SALIVARY GLAND CANCER
     Dosage: ?          OTHER FREQUENCY:EVERY 21 DAYS;?
     Route: 042
     Dates: start: 20201124
  2. PACITAXEL [Concomitant]
     Active Substance: PACLITAXEL
  3. PALONOSETNOR [Concomitant]
  4. FAMOTIDINE. [Concomitant]
     Active Substance: FAMOTIDINE
  5. CISPLATIN. [Concomitant]
     Active Substance: CISPLATIN
  6. NS HYDRATION [Concomitant]
  7. PASAPREPITANT [Concomitant]
  8. DIPHENHYDRAMINE. [Concomitant]
     Active Substance: DIPHENHYDRAMINE

REACTIONS (1)
  - Rash [None]

NARRATIVE: CASE EVENT DATE: 20210317
